FAERS Safety Report 7222612-2 (Version None)
Quarter: 2011Q1

REPORT INFORMATION
  Report Type: 
  Country: None (occurrence: None)
  Receive Date: 20110112
  Receipt Date: 20110105
  Transmission Date: 20110831
  Serious: Yes (Other)
  Sender: FDA-Public Use
  Company Number: FR-PFIZER INC-2011002288

PATIENT
  Sex: Female

DRUGS (2)
  1. LYRICA [Suspect]
     Indication: OFF LABEL USE
  2. LYRICA [Suspect]
     Indication: MULTIPLE SCLEROSIS

REACTIONS (1)
  - OCULAR HYPERTENSION [None]
